FAERS Safety Report 16442539 (Version 2)
Quarter: 2022Q1

REPORT INFORMATION
  Report Type: Report from Study
  Country: US (occurrence: US)
  Receive Date: 20190617
  Receipt Date: 20220130
  Transmission Date: 20220423
  Serious: Yes (Death, Other)
  Sender: FDA-Public Use
  Company Number: US-JAZZ-2019-US-008149

PATIENT
  Age: 58 Year
  Sex: Male

DRUGS (2)
  1. DEFITELIO [Suspect]
     Active Substance: DEFIBROTIDE SODIUM
     Indication: Venoocclusive disease
     Dosage: UNKNOWN DOSE
  2. URSODIOL [Concomitant]
     Active Substance: URSODIOL
     Indication: Venoocclusive disease

REACTIONS (2)
  - Death [Fatal]
  - Venoocclusive disease [Recovered/Resolved]
